FAERS Safety Report 25802630 (Version 1)
Quarter: 2025Q3

REPORT INFORMATION
  Report Type: Spontaneous
  Country: US (occurrence: None)
  Receive Date: 20250913
  Receipt Date: 20250913
  Transmission Date: 20251021
  Serious: Yes (Disabling, Other)
  Sender: FDA-CTU
  Company Number: None

PATIENT
  Age: 37 Year
  Sex: Female

DRUGS (21)
  1. QUETIAPINE [Suspect]
     Active Substance: QUETIAPINE
     Indication: Mood swings
     Route: 048
     Dates: start: 20240101
  2. QUETIAPINE FUMARATE [Suspect]
     Active Substance: QUETIAPINE FUMARATE
     Indication: Mood swings
     Dosage: OTHER QUANTITY : 1 TABLET(S);?FREQUENCY : AT BEDTIME;?
     Route: 048
     Dates: start: 20240101
  3. QUETIAPINE [Suspect]
     Active Substance: QUETIAPINE
  4. LATANOPROST [Concomitant]
     Active Substance: LATANOPROST
  5. KETOCONAZOLE [Concomitant]
     Active Substance: KETOCONAZOLE
  6. CABERGOLINE [Concomitant]
     Active Substance: CABERGOLINE
  7. SIMVASTATIN [Concomitant]
     Active Substance: SIMVASTATIN
  8. LEVOTHYROXINE [Concomitant]
     Active Substance: LEVOTHYROXINE
  9. XYZAL [Concomitant]
     Active Substance: LEVOCETIRIZINE DIHYDROCHLORIDE
  10. metoprolol succ er tablet [Concomitant]
  11. VENTOLIN HFA [Concomitant]
     Active Substance: ALBUTEROL SULFATE
  12. VITAMINS [Concomitant]
     Active Substance: VITAMINS
  13. vitamin D 1000iu tablet [Concomitant]
  14. FAMOTIDINE [Concomitant]
     Active Substance: FAMOTIDINE
  15. MECLIZINE [Concomitant]
     Active Substance: MECLIZINE HYDROCHLORIDE
  16. WEGOVY [Concomitant]
     Active Substance: SEMAGLUTIDE
  17. baby aspirin ec tablet 81mg [Concomitant]
  18. FLONASE [Concomitant]
     Active Substance: FLUTICASONE PROPIONATE
  19. sodium flouride 1.1% dental paste [Concomitant]
  20. MIRALAX [Concomitant]
     Active Substance: POLYETHYLENE GLYCOL 3350
  21. TYLENOL EXTRA STRENGTH [Concomitant]
     Active Substance: ACETAMINOPHEN

REACTIONS (2)
  - Obesity [None]
  - Dehydration [None]
